FAERS Safety Report 7708612-4 (Version None)
Quarter: 2011Q3

REPORT INFORMATION
  Report Type: 
  Country: None (occurrence: None)
  Receive Date: 20110819
  Receipt Date: 20110803
  Transmission Date: 20111222
  Serious: Yes (Disabling, Other)
  Sender: FDA-Public Use
  Company Number: 2010AL000455

PATIENT
  Sex: Female
  Weight: 83.9154 kg

DRUGS (22)
  1. DOXEPIN [Concomitant]
  2. BUPROPION HCL [Concomitant]
  3. LITHIUM CARBONATE [Concomitant]
  4. AMBIEN [Concomitant]
  5. LITHIUM CARBONATE [Concomitant]
  6. TEMAZEPAM [Concomitant]
  7. DEPAKOTE [Concomitant]
  8. PAXIL [Concomitant]
  9. MIRAPEX [Concomitant]
  10. REQUIP [Concomitant]
  11. LAMICTAL [Concomitant]
  12. CLARITIN [Concomitant]
  13. CLONAZEPAM [Concomitant]
  14. ALENDRONATE SODIUM [Concomitant]
  15. SONATA [Suspect]
  16. RISPERDAL [Concomitant]
  17. BUSPIRONE [Concomitant]
  18. METOCLOPRAMIDE [Suspect]
     Indication: WEIGHT DECREASED
     Dosage: 5 MG, QID
     Dates: start: 20041001, end: 20080501
  19. METOCLOPRAMIDE [Suspect]
     Indication: FOOD AVERSION
     Dosage: 5 MG, QID
     Dates: start: 20041001, end: 20080501
  20. ZYPREXA [Concomitant]
  21. ZOLOFT [Concomitant]
  22. BENZTROPINE MESYLATE [Concomitant]

REACTIONS (35)
  - OESOPHAGITIS [None]
  - GASTROOESOPHAGEAL REFLUX DISEASE [None]
  - NERVOUS SYSTEM DISORDER [None]
  - EXTRAPYRAMIDAL DISORDER [None]
  - PARKINSONISM [None]
  - BALANCE DISORDER [None]
  - DIZZINESS [None]
  - RENAL CYST [None]
  - HYPERTONIA [None]
  - HEPATIC STEATOSIS [None]
  - DIARRHOEA [None]
  - VOMITING [None]
  - ACTIVITIES OF DAILY LIVING IMPAIRED [None]
  - BREATH SOUNDS ABNORMAL [None]
  - HAEMATOCRIT DECREASED [None]
  - PLATELET COUNT DECREASED [None]
  - NAUSEA [None]
  - INTENTIONAL DRUG MISUSE [None]
  - RESTLESS LEGS SYNDROME [None]
  - BLEPHAROSPASM [None]
  - ANXIETY [None]
  - WHITE BLOOD CELL COUNT DECREASED [None]
  - SPINAL OSTEOARTHRITIS [None]
  - TARDIVE DYSKINESIA [None]
  - MENTAL DISORDER [None]
  - BIPOLAR DISORDER [None]
  - DEPRESSION [None]
  - IRRITABLE BOWEL SYNDROME [None]
  - HIATUS HERNIA [None]
  - GASTRITIS [None]
  - HAEMOGLOBIN DECREASED [None]
  - HAEMORRHOIDS [None]
  - PAIN [None]
  - CONDITION AGGRAVATED [None]
  - IMPAIRED GASTRIC EMPTYING [None]
